FAERS Safety Report 7911470-6 (Version None)
Quarter: 2011Q4

REPORT INFORMATION
  Report Type: 
  Country: None (occurrence: None)
  Receive Date: 20111114
  Receipt Date: 20111110
  Transmission Date: 20120403
  Serious: Yes (Other)
  Sender: FDA-Public Use
  Company Number: IN-BAYER-2011-108666

PATIENT
  Age: 52 Year
  Sex: Male

DRUGS (1)
  1. IBUPROFEN [Suspect]
     Indication: ANTIINFLAMMATORY THERAPY
     Dosage: 400 MG, Q4HR
     Route: 048

REACTIONS (3)
  - VOMITING [None]
  - DUODENAL OBSTRUCTION [None]
  - WEIGHT DECREASED [None]
